FAERS Safety Report 15876529 (Version 1)
Quarter: 2019Q1

REPORT INFORMATION
  Report Type: Spontaneous
  Country: FR (occurrence: FR)
  Receive Date: 20190127
  Receipt Date: 20190127
  Transmission Date: 20190417
  Serious: Yes (Disabling, Other)
  Sender: FDA-Public Use
  Company Number: PHHY2019FR012583

PATIENT
  Age: 65 Year
  Sex: Male

DRUGS (4)
  1. ORAVIR [Suspect]
     Active Substance: FAMCICLOVIR
     Indication: HERPES OPHTHALMIC
     Dosage: 500 MG, BID
     Route: 048
     Dates: start: 201801, end: 201901
  2. ORAVIR [Suspect]
     Active Substance: FAMCICLOVIR
     Dosage: 1000 MG, TID (2 TABLET OF 500 MG)
     Route: 048
     Dates: start: 20190103
  3. MAGNESIUM [Concomitant]
     Active Substance: MAGNESIUM
     Indication: SUPPLEMENTATION THERAPY
     Route: 065
  4. PRESERVISION 3 [Concomitant]
     Active Substance: MINERALS\OMEGA-3 FATTY ACIDS\VITAMINS
     Indication: AGE-RELATED MACULAR DEGENERATION
     Route: 065

REACTIONS (6)
  - Off label use [None]
  - Vision blurred [Not Recovered/Not Resolved]
  - Disease recurrence [None]
  - Product use in unapproved indication [Unknown]
  - Keratitis [Not Recovered/Not Resolved]
  - Cataract [None]

NARRATIVE: CASE EVENT DATE: 201801
